FAERS Safety Report 7889728-9 (Version None)
Quarter: 2011Q4

REPORT INFORMATION
  Report Type: 
  Country: None (occurrence: None)
  Receive Date: 20111103
  Receipt Date: 20111031
  Transmission Date: 20120403
  Serious: Yes (Hospitalization, Other)
  Sender: FDA-Public Use
  Company Number: IT-ABBOTT-11P-083-0866910-00

PATIENT
  Sex: Female

DRUGS (12)
  1. DURONITRIN [Concomitant]
     Indication: PRODUCT USED FOR UNKNOWN INDICATION
  2. METFORMIN HCL [Concomitant]
     Indication: PRODUCT USED FOR UNKNOWN INDICATION
     Route: 048
  3. LUCEN [Concomitant]
     Indication: PRODUCT USED FOR UNKNOWN INDICATION
  4. NORVIR [Suspect]
     Indication: HIV INFECTION
     Dosage: 1 UNIT
     Route: 048
     Dates: start: 20040101, end: 20110525
  5. ASPIRIN [Suspect]
     Indication: CORONARY ARTERY BYPASS
     Dosage: 1 UNIT
     Route: 048
     Dates: start: 20080101, end: 20110525
  6. LEUCOVORIN CALCIUM [Concomitant]
     Indication: PRODUCT USED FOR UNKNOWN INDICATION
  7. LASIX [Concomitant]
     Indication: PRODUCT USED FOR UNKNOWN INDICATION
  8. PLAVIX [Suspect]
     Indication: CORONARY ARTERY BYPASS
     Dosage: 1 UNIT
     Route: 048
     Dates: start: 20080101, end: 20110525
  9. BISOPROLOL FUMARATE [Concomitant]
     Indication: HYPERTENSION
  10. ATORVASTATIN CALCIUM [Concomitant]
     Indication: PRODUCT USED FOR UNKNOWN INDICATION
  11. TRUVADA [Suspect]
     Indication: HIV INFECTION
     Dosage: 250MG /245 MG
     Route: 048
     Dates: start: 20040101, end: 20110525
  12. REYATAZ [Suspect]
     Indication: HIV INFECTION
     Dosage: 1 UNIT
     Route: 048
     Dates: start: 20040101, end: 20110525

REACTIONS (6)
  - MELAENA [None]
  - DIARRHOEA HAEMORRHAGIC [None]
  - FAECES DISCOLOURED [None]
  - RENAL FAILURE ACUTE [None]
  - ANAEMIA [None]
  - HAEMOGLOBIN DECREASED [None]
